FAERS Safety Report 8616154-7 (Version None)
Quarter: 2012Q3

REPORT INFORMATION
  Report Type: 
  Country: None (occurrence: None)
  Receive Date: 20120809
  Receipt Date: 20120730
  Transmission Date: 20120928
  Serious: Yes (Hospitalization)
  Sender: FDA-Public Use
  Company Number: DKLU1083592

PATIENT
  Age: 40 Year
  Sex: Female

DRUGS (6)
  1. SABRIL [Suspect]
     Indication: EPILEPSY
     Dosage: 1000 MG MILLIGRAM(S), 1 IN 1 D, 1500 MG MILLIGRAM(S), 1 IN 1 D
     Dates: start: 20120730
  2. SABRIL [Suspect]
     Indication: COMPLEX PARTIAL SEIZURES
     Dosage: 1000 MG MILLIGRAM(S), 1 IN 1 D, 1500 MG MILLIGRAM(S), 1 IN 1 D
     Dates: start: 20120730
  3. SABRIL [Suspect]
     Indication: EPILEPSY
     Dosage: 1000 MG MILLIGRAM(S), 1 IN 1 D, 1500 MG MILLIGRAM(S), 1 IN 1 D
     Dates: start: 20120702
  4. SABRIL [Suspect]
     Indication: COMPLEX PARTIAL SEIZURES
     Dosage: 1000 MG MILLIGRAM(S), 1 IN 1 D, 1500 MG MILLIGRAM(S), 1 IN 1 D
     Dates: start: 20120702
  5. PHENOBARBITAL TAB [Concomitant]
  6. DILANTIN [Concomitant]

REACTIONS (1)
  - GRAND MAL CONVULSION [None]
